FAERS Safety Report 5882642-X (Version None)
Quarter: 2008Q3

REPORT INFORMATION
  Report Type: 
  Country: None (occurrence: None)
  Receive Date: 20080913
  Receipt Date: 20080811
  Transmission Date: 20090109
  Serious: No
  Sender: FDA-Public Use
  Company Number: US-ABBOTT-08P-163-0470187-00

PATIENT
  Sex: Female
  Weight: 60.836 kg

DRUGS (8)
  1. HUMIRA [Suspect]
     Indication: RHEUMATOID ARTHRITIS
     Route: 058
     Dates: start: 20060901, end: 20070301
  2. HUMIRA [Suspect]
     Route: 058
     Dates: start: 20070301, end: 20070401
  3. HUMIRA [Suspect]
     Route: 058
     Dates: start: 20070401, end: 20070501
  4. HUMIRA [Suspect]
     Route: 058
     Dates: start: 20070501
  5. METHOTREXATE [Suspect]
     Indication: RHEUMATOID ARTHRITIS
     Dates: end: 20070401
  6. SULFASALAZINE [Suspect]
     Indication: RHEUMATOID ARTHRITIS
  7. GRAPE JUICE [Concomitant]
     Indication: RHEUMATOID ARTHRITIS
     Dosage: 2 - 3 TIMES DAILY
     Route: 048
     Dates: start: 20080401
  8. CERTO [Concomitant]
     Indication: RHEUMATOID ARTHRITIS
     Route: 048
     Dates: start: 20080401

REACTIONS (3)
  - HEPATIC ENZYME INCREASED [None]
  - INFLAMMATION [None]
  - PAIN [None]
